FAERS Safety Report 22695710 (Version 2)
Quarter: 2024Q4

REPORT INFORMATION
  Report Type: Spontaneous
  Country: JP (occurrence: JP)
  Receive Date: 20230712
  Receipt Date: 20241025
  Transmission Date: 20250114
  Serious: No
  Sender: ALK-ABELLO
  Company Number: JP-ALK-ABELLO A/S-2023AA002675

PATIENT

DRUGS (2)
  1. MITICURE [Suspect]
     Active Substance: DERMATOPHAGOIDES FARINAE\DERMATOPHAGOIDES PTERONYSSINUS
     Indication: Rhinitis allergic
     Dosage: 10000 JAU
     Route: 060
  2. MITICURE [Suspect]
     Active Substance: DERMATOPHAGOIDES FARINAE\DERMATOPHAGOIDES PTERONYSSINUS
     Dosage: 3300 JAU
     Route: 060

REACTIONS (5)
  - Gastroenteritis eosinophilic [Unknown]
  - Oral pruritus [Unknown]
  - Oropharyngeal pain [Unknown]
  - Eosinophilic oesophagitis [Unknown]
  - Abdominal pain upper [Unknown]
